FAERS Safety Report 7115341-7 (Version None)
Quarter: 2010Q4

REPORT INFORMATION
  Report Type: 
  Country: None (occurrence: None)
  Receive Date: 20101122
  Receipt Date: 20101111
  Transmission Date: 20110411
  Serious: Yes (Hospitalization, Other)
  Sender: FDA-Public Use
  Company Number: US-AMGEN-USASP2010001309

PATIENT

DRUGS (22)
  1. NPLATE [Suspect]
     Indication: IDIOPATHIC THROMBOCYTOPENIC PURPURA
     Dosage: 10 A?G/KG, QWK
     Route: 058
     Dates: start: 20090525, end: 20100824
  2. CORTICOSTEROIDS [Concomitant]
  3. IMMU-G [Concomitant]
     Dosage: UNK
     Dates: start: 20090514
  4. STEROID ANTIBACTERIALS [Concomitant]
  5. CELLCEPT [Concomitant]
  6. HEPARIN [Concomitant]
  7. COUMADIN [Concomitant]
  8. VINCRISTINE [Concomitant]
  9. RITUXAN [Concomitant]
  10. AMICAR [Concomitant]
  11. DEXAMETHASONE                      /00016002/ [Concomitant]
     Dosage: 40 UNK, UNK
     Route: 042
     Dates: start: 20100506
  12. PREDNISONE [Concomitant]
  13. RED BLOOD CELLS [Concomitant]
  14. PANTOPRAZOLE [Concomitant]
     Dosage: 40 MG, BID
     Route: 048
  15. POTASSIUM CHLORIDE [Concomitant]
  16. ACYCLOVIR [Concomitant]
     Dosage: 400 MG, BID
     Route: 048
  17. FLUCONAZOLE [Concomitant]
     Dosage: 200 MG, QD
     Route: 048
  18. DIGOXIN [Concomitant]
     Dosage: .125 MG, QD
     Route: 048
  19. BIOTENE                            /00203502/ [Concomitant]
     Dosage: 5 ML, UNK
     Route: 048
  20. MYCOPHENOLATE MOFETIL [Concomitant]
     Dosage: 500 MG, BID
     Route: 048
  21. SUCRALFATE [Concomitant]
     Dosage: 1 UNK, QID
     Route: 048
  22. DOCUSATE SODIUM [Concomitant]

REACTIONS (20)
  - ANAEMIA [None]
  - ATRIAL FIBRILLATION [None]
  - CORONARY ARTERY DISEASE [None]
  - DEEP VEIN THROMBOSIS [None]
  - DEPRESSION [None]
  - DYSPNOEA [None]
  - GASTROINTESTINAL HAEMORRHAGE [None]
  - GASTROOESOPHAGEAL REFLUX DISEASE [None]
  - HAEMATURIA [None]
  - HYPOKALAEMIA [None]
  - MELAENA [None]
  - MYALGIA [None]
  - MYOCARDIAL INFARCTION [None]
  - ORTHOSTATIC HYPOTENSION [None]
  - PLEURAL EFFUSION [None]
  - PNEUMONIA [None]
  - RESTLESS LEGS SYNDROME [None]
  - SYNCOPE [None]
  - THROMBOCYTOPENIA [None]
  - URINARY TRACT INFECTION [None]
